FAERS Safety Report 5526462-4 (Version None)
Quarter: 2007Q4

REPORT INFORMATION
  Report Type: 
  Country: None (occurrence: None)
  Receive Date: 20071127
  Receipt Date: 20071116
  Transmission Date: 20080405
  Serious: Yes (Other)
  Sender: FDA-Public Use
  Company Number: US-JNJFOC-20071107432

PATIENT
  Age: 21 Year
  Sex: Male
  Weight: 73.03 kg

DRUGS (1)
  1. RISPERDAL [Suspect]
     Indication: SCHIZOPHRENIA
     Route: 048

REACTIONS (3)
  - DYSPHAGIA [None]
  - DYSPNOEA [None]
  - SPASMODIC DYSPHONIA [None]
